FAERS Safety Report 13932975 (Version 2)
Quarter: 2017Q4

REPORT INFORMATION
  Report Type: Spontaneous
  Country: CA (occurrence: CA)
  Receive Date: 20170904
  Receipt Date: 20171005
  Transmission Date: 20180320
  Serious: Yes (Hospitalization)
  Sender: FDA-Public Use
  Company Number: CA-PFIZER INC-2015277192

PATIENT
  Age: 68 Year
  Sex: Female

DRUGS (2)
  1. XELJANZ [Suspect]
     Active Substance: TOFACITINIB CITRATE
     Dosage: 5 MG, 2X/DAY
     Route: 048
     Dates: start: 2016
  2. XELJANZ [Suspect]
     Active Substance: TOFACITINIB CITRATE
     Indication: RHEUMATOID ARTHRITIS
     Dosage: 5 MG, 2X/DAY
     Route: 048
     Dates: start: 20150726

REACTIONS (13)
  - Dizziness postural [Not Recovered/Not Resolved]
  - Fall [Not Recovered/Not Resolved]
  - Pain [Not Recovered/Not Resolved]
  - Fatigue [Recovering/Resolving]
  - Cardiac disorder [Not Recovered/Not Resolved]
  - Renal disorder [Not Recovered/Not Resolved]
  - Decreased appetite [Not Recovered/Not Resolved]
  - Gait disturbance [Not Recovered/Not Resolved]
  - Blood count abnormal [Not Recovered/Not Resolved]
  - Back pain [Not Recovered/Not Resolved]
  - Blood potassium increased [Not Recovered/Not Resolved]
  - Drug effect incomplete [Unknown]
  - Asthenia [Not Recovered/Not Resolved]

NARRATIVE: CASE EVENT DATE: 2016
